FAERS Safety Report 14588519 (Version 1)
Quarter: 2018Q1

REPORT INFORMATION
  Report Type: Spontaneous
  Country: US (occurrence: US)
  Receive Date: 20180301
  Receipt Date: 20180301
  Transmission Date: 20180509
  Serious: Yes (Other)
  Sender: FDA-Public Use
  Company Number: US-TAKEDA-2018TUS005038

PATIENT
  Sex: Female

DRUGS (1)
  1. ENTYVIO [Suspect]
     Active Substance: VEDOLIZUMAB
     Indication: CROHN^S DISEASE
     Dosage: UNK
     Route: 065

REACTIONS (6)
  - Splenomegaly [Unknown]
  - Hepatomegaly [Unknown]
  - Musculoskeletal chest pain [Unknown]
  - Abdominal tenderness [Unknown]
  - Weight increased [Unknown]
  - Thyroid function test abnormal [Unknown]
